FAERS Safety Report 21359367 (Version 4)
Quarter: 2022Q4

REPORT INFORMATION
  Report Type: Spontaneous
  Country: CA (occurrence: CA)
  Receive Date: 20220921
  Receipt Date: 20221213
  Transmission Date: 20230113
  Serious: Yes (Other)
  Sender: FDA-Public Use
  Company Number: CA-PFIZER INC-PV202200066525

PATIENT
  Age: 59 Year
  Sex: Female
  Weight: 113.38 kg

DRUGS (3)
  1. LORBRENA [Suspect]
     Active Substance: LORLATINIB
     Dosage: 100 MG, 1X/DAY
     Dates: start: 20191006
  2. LORBRENA [Suspect]
     Active Substance: LORLATINIB
     Dosage: 100 MG, DAILY
     Route: 048
  3. LORBRENA [Suspect]
     Active Substance: LORLATINIB
     Dosage: 100 MG, 1X/DAY (100MG PO ONE (1) TIME PER DAY (IN THE MORNING))
     Route: 048

REACTIONS (4)
  - Weight decreased [Unknown]
  - Neuropathy peripheral [Unknown]
  - Neuralgia [Unknown]
  - Cough [Unknown]

NARRATIVE: CASE EVENT DATE: 20220101
